FAERS Safety Report 8695245 (Version 2)
Quarter: 2013Q4

REPORT INFORMATION
  Report Type: Spontaneous
  Country: US (occurrence: US)
  Receive Date: 20120731
  Receipt Date: 20131107
  Transmission Date: 20140711
  Serious: Yes (Other)
  Sender: FDA-Public Use
  Company Number: US-009507513-1207USA009881

PATIENT
  Sex: Male

DRUGS (3)
  1. ZOCOR [Suspect]
     Dosage: 10 MG, QD
     Route: 048
  2. ATORVASTATIN [Suspect]
     Dosage: 40 MG, QD
     Route: 048
  3. ZETIA [Concomitant]
     Route: 048

REACTIONS (9)
  - Malaise [Unknown]
  - Amnesia [Unknown]
  - Depression [Unknown]
  - Self esteem decreased [Unknown]
  - Muscle disorder [Unknown]
  - Mental disorder [Unknown]
  - Thinking abnormal [Unknown]
  - Feeling abnormal [Unknown]
  - Fatigue [Unknown]
